FAERS Safety Report 5535872-0 (Version None)
Quarter: 2007Q4

REPORT INFORMATION
  Report Type: 
  Country: None (occurrence: None)
  Receive Date: 20071206
  Receipt Date: 20071130
  Transmission Date: 20080405
  Serious: Yes (Hospitalization, Other)
  Sender: FDA-Public Use
  Company Number: SE-JNJFOC-20061204491

PATIENT
  Sex: Male
  Weight: 64 kg

DRUGS (7)
  1. GALANTAMINE HYDROBROMIDE [Suspect]
     Indication: DEMENTIA ALZHEIMER'S TYPE
     Route: 048
  2. SOBRIL [Concomitant]
     Dosage: 5-10MG
  3. IMOVANE [Concomitant]
  4. CITALOPRAM HYDROBROMIDE [Concomitant]
  5. PARAFFIN [Concomitant]
     Route: 048
  6. ALVEDON [Concomitant]
     Indication: PAIN
  7. XYLOCAINE [Concomitant]

REACTIONS (2)
  - ARTHRALGIA [None]
  - FALL [None]
